FAERS Safety Report 19043640 (Version 1)
Quarter: 2021Q1

REPORT INFORMATION
  Report Type: Spontaneous
  Country: CN (occurrence: CN)
  Receive Date: 20210323
  Receipt Date: 20210323
  Transmission Date: 20210420
  Serious: Yes (Hospitalization)
  Sender: FDA-Public Use
  Company Number: CN-PFIZER INC-2021276828

PATIENT
  Age: 37 Year
  Sex: Male
  Weight: 68 kg

DRUGS (10)
  1. CYTARABINE. [Suspect]
     Active Substance: CYTARABINE
     Indication: CHEMOTHERAPY
  2. VINCRISTINE SULFATE. [Suspect]
     Active Substance: VINCRISTINE SULFATE
     Indication: ACUTE MYELOID LEUKAEMIA
     Dosage: 2 MG, 1X/DAY
     Route: 042
     Dates: start: 20210222, end: 20210223
  3. CYTARABINE. [Suspect]
     Active Substance: CYTARABINE
     Indication: HEPATITIS B E ANTIGEN NEGATIVE
  4. VINCRISTINE SULFATE. [Suspect]
     Active Substance: VINCRISTINE SULFATE
     Indication: HEPATITIS B E ANTIGEN NEGATIVE
  5. VINCRISTINE SULFATE. [Suspect]
     Active Substance: VINCRISTINE SULFATE
     Indication: PULMONARY MASS
  6. CYTARABINE. [Suspect]
     Active Substance: CYTARABINE
     Indication: ACUTE MYELOID LEUKAEMIA
     Dosage: 0.2 G, 1X/DAY
     Route: 041
     Dates: start: 20210222, end: 20210228
  7. CYTARABINE. [Suspect]
     Active Substance: CYTARABINE
     Indication: NEOPLASM
  8. CYTARABINE. [Suspect]
     Active Substance: CYTARABINE
     Indication: PULMONARY MASS
  9. VINCRISTINE SULFATE. [Suspect]
     Active Substance: VINCRISTINE SULFATE
     Indication: CHEMOTHERAPY
  10. VINCRISTINE SULFATE. [Suspect]
     Active Substance: VINCRISTINE SULFATE
     Indication: NEOPLASM

REACTIONS (4)
  - White blood cell count decreased [Unknown]
  - Neutrophil count decreased [Unknown]
  - Haemoglobin decreased [Unknown]
  - Platelet count decreased [Unknown]

NARRATIVE: CASE EVENT DATE: 20210302
